FAERS Safety Report 18571684 (Version 26)
Quarter: 2023Q4

REPORT INFORMATION
  Report Type: Report from Study
  Country: BR (occurrence: BR)
  Receive Date: 20201202
  Receipt Date: 20231007
  Transmission Date: 20240110
  Serious: Yes (Life-Threatening, Hospitalization, Disabling, Other)
  Sender: FDA-Public Use
  Company Number: BR-TAKEDA-BR202015740

PATIENT
  Sex: Male
  Weight: 34.921 kg

DRUGS (14)
  1. IDURSULFASE [Suspect]
     Active Substance: IDURSULFASE
     Indication: Mucopolysaccharidosis II
     Dosage: 3 DOSAGE FORM
     Route: 042
     Dates: start: 20150630
  2. IDURSULFASE [Suspect]
     Active Substance: IDURSULFASE
     Dosage: 3 DOSAGE FORM, 1/WEEK
     Route: 042
  3. IDURSULFASE [Suspect]
     Active Substance: IDURSULFASE
     Dosage: 3 DOSAGE FORM
     Route: 042
     Dates: start: 201506
  4. IDURSULFASE [Suspect]
     Active Substance: IDURSULFASE
     Dosage: 3 DOSAGE FORM, 1/WEEK
     Route: 042
     Dates: start: 20150630
  5. IDURSULFASE [Suspect]
     Active Substance: IDURSULFASE
     Dosage: UNK
     Route: 065
     Dates: start: 20211111
  6. IDURSULFASE [Suspect]
     Active Substance: IDURSULFASE
     Dosage: UNK
     Route: 065
  7. IDURSULFASE [Suspect]
     Active Substance: IDURSULFASE
     Dosage: 3 DOSAGE FORM
     Route: 042
  8. IDURSULFASE [Suspect]
     Active Substance: IDURSULFASE
     Dosage: 3 DOSAGE FORM, 1/WEEK
     Route: 065
  9. IDURSULFASE [Suspect]
     Active Substance: IDURSULFASE
     Dosage: UNK
     Route: 042
  10. IDURSULFASE [Suspect]
     Active Substance: IDURSULFASE
     Dosage: 3 DOSAGE FORM
     Route: 065
  11. IDURSULFASE [Suspect]
     Active Substance: IDURSULFASE
     Dosage: 3 DOSAGE FORM, 1/WEEK
     Route: 042
  12. IDURSULFASE [Suspect]
     Active Substance: IDURSULFASE
     Dosage: UNK, 1/WEEK
     Route: 042
  13. QUETIAPINE [Concomitant]
     Active Substance: QUETIAPINE
     Indication: Sedative therapy
     Dosage: 100 MILLIGRAM, QD
     Route: 065
  14. QUETIAPINE [Concomitant]
     Active Substance: QUETIAPINE
     Indication: Insomnia

REACTIONS (40)
  - Arthropathy [Unknown]
  - Mastication disorder [Recovering/Resolving]
  - Gait disturbance [Not Recovered/Not Resolved]
  - Gait inability [Not Recovered/Not Resolved]
  - Dyspnoea [Not Recovered/Not Resolved]
  - Blood pressure decreased [Recovering/Resolving]
  - Malaise [Not Recovered/Not Resolved]
  - Foot fracture [Recovering/Resolving]
  - Pneumonia [Recovered/Resolved]
  - Musculoskeletal stiffness [Unknown]
  - Irritability [Unknown]
  - Poor quality sleep [Unknown]
  - Decreased immune responsiveness [Unknown]
  - Illness [Unknown]
  - Nervousness [Unknown]
  - Product availability issue [Unknown]
  - Agitation [Unknown]
  - Ear infection [Unknown]
  - Patient uncooperative [Unknown]
  - Puncture site bruise [Unknown]
  - Drug ineffective [Recovering/Resolving]
  - Skin hypertrophy [Unknown]
  - Stress [Unknown]
  - Cardiac valve disease [Unknown]
  - Movement disorder [Unknown]
  - Mucopolysaccharidosis [Unknown]
  - Cough [Not Recovered/Not Resolved]
  - Pyrexia [Recovering/Resolving]
  - Infusion site extravasation [Unknown]
  - Respiratory rate increased [Unknown]
  - Nervous system disorder [Unknown]
  - Platelet count decreased [Not Recovered/Not Resolved]
  - Catarrh [Unknown]
  - Poor venous access [Unknown]
  - Fatigue [Unknown]
  - Diarrhoea [Not Recovered/Not Resolved]
  - Oedema peripheral [Recovered/Resolved]
  - Inappropriate schedule of product administration [Unknown]
  - Product preparation error [Unknown]
  - Product dose omission issue [Unknown]

NARRATIVE: CASE EVENT DATE: 20190101
